FAERS Safety Report 10094635 (Version 2)
Quarter: 2014Q3

REPORT INFORMATION
  Report Type: Spontaneous
  Country: US (occurrence: None)
  Receive Date: 20140418
  Receipt Date: 20140804
  Transmission Date: 20150326
  Serious: Yes (Hospitalization)
  Sender: FDA-Public Use
  Company Number: 2014-US-004343

PATIENT
  Age: 23 Year
  Sex: Male
  Weight: 108.8 kg

DRUGS (2)
  1. XYREM [Suspect]
     Active Substance: SODIUM OXYBATE
     Indication: NARCOLEPSY
     Route: 048
     Dates: start: 201009, end: 2010
  2. SINEMET (CARBIDOPA, LEVODOPA) [Concomitant]

REACTIONS (1)
  - Dystonia [None]

NARRATIVE: CASE EVENT DATE: 201201
